FAERS Safety Report 7208659-0 (Version None)
Quarter: 2011Q1

REPORT INFORMATION
  Report Type: 
  Country: None (occurrence: None)
  Receive Date: 20110104
  Receipt Date: 20110103
  Transmission Date: 20110831
  Serious: Yes (Hospitalization)
  Sender: FDA-Public Use
  Company Number: AR-ROCHE-748573

PATIENT
  Sex: Female
  Weight: 85.8 kg

DRUGS (4)
  1. TOCILIZUMAB [Suspect]
     Indication: RHEUMATOID ARTHRITIS
     Dosage: DOSEAGE FORM REPORTED AS INFUSION. FREQUENCY TACKEN FROM PROTOCOL. LAST DOSE ON 23 NOV 2010.
     Route: 042
     Dates: start: 20061226
  2. FOLIC ACID [Concomitant]
     Dosage: TDD REORTED 10 MG/ WEEK.
     Dates: start: 20051001
  3. NAPROXEN [Concomitant]
     Dates: start: 20051001
  4. METHOTREXATE [Concomitant]
     Dosage: TDD REPORTED 10 MG/W
     Dates: start: 19980101

REACTIONS (1)
  - ARTHRALGIA [None]
